FAERS Safety Report 11415975 (Version 1)
Quarter: 2015Q3

REPORT INFORMATION
  Report Type: Spontaneous
  Country: JP (occurrence: JP)
  Receive Date: 20150825
  Receipt Date: 20150825
  Transmission Date: 20151125
  Serious: Yes (Other)
  Sender: FDA-Public Use
  Company Number: JP-GLAXOSMITHKLINE INC.-JP2015JPN039027

PATIENT
  Sex: Male

DRUGS (2)
  1. SUTENT [Concomitant]
     Active Substance: SUNITINIB MALATE
     Dosage: UNK
  2. VOTRIENT [Suspect]
     Active Substance: PAZOPANIB HYDROCHLORIDE
     Indication: RENAL CELL CARCINOMA
     Dosage: 200 UNK, UNK
     Route: 048
     Dates: start: 201503, end: 201503

REACTIONS (1)
  - Metastatic renal cell carcinoma [Unknown]

NARRATIVE: CASE EVENT DATE: 201503
